FAERS Safety Report 25040089 (Version 1)
Quarter: 2025Q1

REPORT INFORMATION
  Report Type: Report from Study
  Country: US (occurrence: US)
  Receive Date: 20250305
  Receipt Date: 20250305
  Transmission Date: 20250409
  Serious: Yes (Other)
  Sender: ALEXION PHARMACEUTICALS
  Company Number: US-AstraZeneca-CH-00818162A

PATIENT

DRUGS (1)
  1. EPLONTERSEN SODIUM [Suspect]
     Active Substance: EPLONTERSEN SODIUM

REACTIONS (4)
  - Neuropathy peripheral [Not Recovered/Not Resolved]
  - Gastrointestinal disorder [Not Recovered/Not Resolved]
  - Eye disorder [Not Recovered/Not Resolved]
  - Cataract [Not Recovered/Not Resolved]
